FAERS Safety Report 20796228 (Version 3)
Quarter: 2025Q1

REPORT INFORMATION
  Report Type: Spontaneous
  Country: US (occurrence: US)
  Receive Date: 20220506
  Receipt Date: 20250325
  Transmission Date: 20250409
  Serious: No
  Sender: GLAXOSMITHKLINE
  Company Number: US-GSKCCFUS-Case-01368594_AE-79119

PATIENT
  Sex: Female

DRUGS (1)
  1. BENLYSTA [Suspect]
     Active Substance: BELIMUMAB
     Indication: Systemic lupus erythematosus
     Dosage: 200 MG/ML, WE
     Route: 058
     Dates: start: 202204

REACTIONS (5)
  - Injection site pain [Unknown]
  - Limb discomfort [Unknown]
  - Pain [Unknown]
  - Feeling abnormal [Unknown]
  - Product dose omission issue [Unknown]
